FAERS Safety Report 15436847 (Version 2)
Quarter: 2018Q4

REPORT INFORMATION
  Report Type: Report from Study
  Country: US (occurrence: US)
  Receive Date: 20180927
  Receipt Date: 20181008
  Transmission Date: 20190204
  Serious: Yes (Death, Life-Threatening, Other)
  Sender: FDA-Public Use
  Company Number: US-TEVA-2018-US-957628

PATIENT
  Age: 13 Year
  Sex: Female

DRUGS (4)
  1. CLINDAMYCIN. [Suspect]
     Active Substance: CLINDAMYCIN
     Route: 065
  2. QUETIAPINE. [Suspect]
     Active Substance: QUETIAPINE
     Route: 065
  3. METRONIDAZOLE. [Suspect]
     Active Substance: METRONIDAZOLE
     Route: 065
  4. ACETAMINOPHEN. [Suspect]
     Active Substance: ACETAMINOPHEN
     Route: 065

REACTIONS (9)
  - Depressed level of consciousness [Unknown]
  - Hypotension [Unknown]
  - Anion gap abnormal [Unknown]
  - Acute kidney injury [Unknown]
  - Toxicity to various agents [Fatal]
  - Metabolic acidosis [Unknown]
  - Acute lung injury [Unknown]
  - Acute respiratory distress syndrome [Unknown]
  - Coma [Unknown]
